FAERS Safety Report 9628570 (Version 6)
Quarter: 2015Q3

REPORT INFORMATION
  Report Type: Report from Study
  Country: BR (occurrence: BR)
  Receive Date: 20131017
  Receipt Date: 20150707
  Transmission Date: 20151125
  Serious: Yes (Hospitalization, Other)
  Sender: FDA-Public Use
  Company Number: BR-ROCHE-716447

PATIENT
  Age: 53 Year
  Sex: Female
  Weight: 78 kg

DRUGS (27)
  1. MABTHERA [Suspect]
     Active Substance: RITUXIMAB
     Indication: NEPHROTIC SYNDROME
  2. LOSARTAN. [Concomitant]
     Active Substance: LOSARTAN
     Dosage: DRUG NAME: POTASSIC LOSARTAN
     Route: 065
  3. PRISTIQ EXTENDED RELEASE [Concomitant]
     Active Substance: DESVENLAFAXINE SUCCINATE
  4. LYRICA [Concomitant]
     Active Substance: PREGABALIN
  5. CICLOSPORIN [Concomitant]
     Active Substance: CYCLOSPORINE
     Route: 065
  6. SPIRONOLACTONE. [Concomitant]
     Active Substance: SPIRONOLACTONE
  7. METICORTEN [Concomitant]
     Active Substance: PREDNISONE
  8. EXODUS [Concomitant]
     Active Substance: ESCITALOPRAM OXALATE
     Indication: DEPRESSION
     Route: 065
  9. PLASIL [Concomitant]
     Active Substance: METOCLOPRAMIDE HYDROCHLORIDE
     Route: 065
     Dates: start: 2010, end: 2010
  10. MABTHERA [Suspect]
     Active Substance: RITUXIMAB
     Indication: RHEUMATOID ARTHRITIS
     Dosage: MOST RECENT DOSE ON 18/JUL/2011,15 MAR 2013, 11/DEC/2013, 08/JAN/2015.
     Route: 042
  11. DEPAKENE [Concomitant]
     Active Substance: VALPROIC ACID
     Indication: DEPRESSION
     Route: 065
  12. CARVEDILOL. [Concomitant]
     Active Substance: CARVEDILOL
  13. OMEPRAZOLE. [Concomitant]
     Active Substance: OMEPRAZOLE
  14. CAPTOPRIL. [Concomitant]
     Active Substance: CAPTOPRIL
     Indication: HYPERTENSION
     Route: 065
  15. ATENOLOL. [Concomitant]
     Active Substance: ATENOLOL
     Route: 065
  16. FUROSEMIDE. [Concomitant]
     Active Substance: FUROSEMIDE
     Indication: POLYURIA
     Route: 065
  17. CYCLOPHOSPHAMIDE. [Concomitant]
     Active Substance: CYCLOPHOSPHAMIDE
     Route: 065
  18. DIGOXIN. [Concomitant]
     Active Substance: DIGOXIN
  19. MABTHERA [Suspect]
     Active Substance: RITUXIMAB
     Indication: GLOMERULONEPHRITIS
  20. ATENSINA [Concomitant]
     Active Substance: CLONIDINE
     Indication: HYPERTENSION
     Route: 065
  21. SIMVASTATIN. [Concomitant]
     Active Substance: SIMVASTATIN
     Route: 065
  22. REUQUINOL [Concomitant]
     Active Substance: HYDROXYCHLOROQUINE SULFATE
  23. LORAX [Concomitant]
     Active Substance: LORAZEPAM
  24. CYCLOPHOSPHAMIDE. [Suspect]
     Active Substance: CYCLOPHOSPHAMIDE
     Indication: PROTEINURIA
     Dosage: DRUG NAME REPORTED AS GENUXAL
     Route: 065
  25. PREDNISONE. [Concomitant]
     Active Substance: PREDNISONE
     Route: 065
  26. ZYLORIC [Concomitant]
     Active Substance: ALLOPURINOL
     Route: 065
  27. ROQUINOL [Concomitant]
     Active Substance: FLEROXACIN
     Indication: BONE DISORDER
     Dosage: REPORTED AS REUQUINOL
     Route: 065

REACTIONS (18)
  - Proteinuria [Recovering/Resolving]
  - Influenza [Unknown]
  - Gait disturbance [Recovered/Resolved]
  - Wound infection pseudomonas [Recovered/Resolved]
  - Osteomyelitis [Recovered/Resolved]
  - Haematoma [Recovering/Resolving]
  - Arthralgia [Recovered/Resolved]
  - Urinary tract infection [Unknown]
  - Infection [Unknown]
  - Swelling face [Recovering/Resolving]
  - Glomerulonephritis [Not Recovered/Not Resolved]
  - Immunosuppression [Unknown]
  - White blood cell count decreased [Recovered/Resolved]
  - Fall [Recovered/Resolved]
  - Oedema [Recovering/Resolving]
  - Osteoarthritis [Recovered/Resolved]
  - Joint effusion [Recovered/Resolved]
  - Intervertebral discitis [Recovered/Resolved]

NARRATIVE: CASE EVENT DATE: 2010
